FAERS Safety Report 17379751 (Version 1)
Quarter: 2020Q1

REPORT INFORMATION
  Report Type: Spontaneous
  Country: US (occurrence: US)
  Receive Date: 20200206
  Receipt Date: 20200206
  Transmission Date: 20200409
  Serious: No
  Sender: FDA-Public Use
  Company Number: US-ABBVIE-19K-163-2693144-00

PATIENT
  Age: 28 Year
  Sex: Female
  Weight: 61.29 kg

DRUGS (3)
  1. OTREXUP [Concomitant]
     Active Substance: METHOTREXATE
     Indication: RHEUMATOID ARTHRITIS
  2. HUMIRA [Suspect]
     Active Substance: ADALIMUMAB
     Indication: RHEUMATOID ARTHRITIS
     Route: 058
     Dates: start: 201808
  3. FOLIC ACID. [Concomitant]
     Active Substance: FOLIC ACID
     Indication: ADVERSE DRUG REACTION

REACTIONS (6)
  - Injection site scab [Not Recovered/Not Resolved]
  - Drug delivery system issue [Recovered/Resolved]
  - Injection site erythema [Recovered/Resolved]
  - Injection site haemorrhage [Recovered/Resolved]
  - Injection site injury [Recovered/Resolved]
  - Wound dehiscence [Recovering/Resolving]

NARRATIVE: CASE EVENT DATE: 20190304
